FAERS Safety Report 7819190-3 (Version None)
Quarter: 2011Q4

REPORT INFORMATION
  Report Type: 
  Country: None (occurrence: None)
  Receive Date: 20111018
  Receipt Date: 20111006
  Transmission Date: 20120403
  Serious: Yes (Other)
  Sender: FDA-Public Use
  Company Number: JP-UCBSA-043184

PATIENT
  Age: 38 Year
  Sex: Female

DRUGS (10)
  1. PRAVASTATIN SODIUM [Concomitant]
     Route: 048
     Dates: start: 20110711
  2. VOALLA [Concomitant]
     Route: 061
  3. LOCOID [Concomitant]
     Route: 061
  4. HIRUDOID [Concomitant]
     Route: 061
  5. CEFAZOLIN SODIUM [Concomitant]
     Dosage: 6 DOSAGE FORM, 1 DAY
     Dates: start: 20100203
  6. LIDOMEX [Concomitant]
     Route: 061
  7. MAGNESIUM OXIDE [Concomitant]
     Dosage: 6 DOSAGES FORM , 1 DAY
     Route: 048
     Dates: start: 20100203
  8. ANTEBATE [Concomitant]
     Route: 061
  9. XYZAL [Suspect]
     Indication: DERMATITIS ATOPIC
     Route: 048
     Dates: start: 20110829, end: 20110928
  10. CINAL [Concomitant]
     Route: 048

REACTIONS (1)
  - ALOPECIA [None]
